FAERS Safety Report 14542467 (Version 1)
Quarter: 2018Q1

REPORT INFORMATION
  Report Type: Spontaneous
  Country: FR (occurrence: FR)
  Receive Date: 20180216
  Receipt Date: 20180216
  Transmission Date: 20180509
  Serious: Yes (Hospitalization, Other)
  Sender: FDA-Public Use
  Company Number: FR-OTSUKA-DJ201403774

PATIENT
  Age: 22 Year
  Sex: Male
  Weight: 88 kg

DRUGS (2)
  1. PAROXETINE. [Concomitant]
     Active Substance: PAROXETINE
     Indication: PRODUCT USED FOR UNKNOWN INDICATION
     Dosage: 20 MG, QD
     Route: 065
  2. ABILIFY [Suspect]
     Active Substance: ARIPIPRAZOLE
     Indication: PSYCHOTIC DISORDER
     Dosage: 5 MG, UNK
     Route: 048
     Dates: start: 201109

REACTIONS (9)
  - Dyskinesia [Unknown]
  - Intentional product misuse [Unknown]
  - Blood triglycerides increased [Unknown]
  - Wrong technique in product usage process [Unknown]
  - Aggression [Unknown]
  - Off label use [Unknown]
  - Psychotic disorder [Unknown]
  - High density lipoprotein decreased [Unknown]
  - Weight increased [Unknown]

NARRATIVE: CASE EVENT DATE: 201109
